FAERS Safety Report 7442096-9 (Version None)
Quarter: 2011Q2

REPORT INFORMATION
  Report Type: 
  Country: None (occurrence: None)
  Receive Date: 20110428
  Receipt Date: 20101209
  Transmission Date: 20111010
  Serious: Yes (Hospitalization, Other)
  Sender: FDA-Public Use
  Company Number: US-BAYER-201010316NA

PATIENT
  Age: 31 Year
  Sex: Female
  Weight: 79 kg

DRUGS (4)
  1. YASMIN [Suspect]
     Indication: PRODUCT USED FOR UNKNOWN INDICATION
     Route: 048
     Dates: start: 20061019, end: 20070113
  2. COUMADIN [Concomitant]
     Indication: PRODUCT USED FOR UNKNOWN INDICATION
     Dosage: 10 MG (DAILY DOSE), QD, ORAL
     Route: 048
     Dates: start: 20070113
  3. YAZ [Suspect]
     Indication: DYSMENORRHOEA
     Route: 065
     Dates: start: 20061019, end: 20070113
  4. LOVENOX [Concomitant]
     Indication: PRODUCT USED FOR UNKNOWN INDICATION
     Route: 065
     Dates: start: 20070113

REACTIONS (2)
  - PULMONARY EMBOLISM [None]
  - CHEST PAIN [None]
